FAERS Safety Report 19165123 (Version 1)
Quarter: 2021Q2

REPORT INFORMATION
  Report Type: Spontaneous
  Country: NL (occurrence: NL)
  Receive Date: 20210421
  Receipt Date: 20210421
  Transmission Date: 20210717
  Serious: Yes (Death)
  Sender: FDA-Public Use
  Company Number: NL-TEVA-2021-NL-1902911

PATIENT
  Age: 58 Year
  Sex: Male
  Weight: 63 kg

DRUGS (5)
  1. SPIRONOLACTON / BRAND NAME NOT SPECIFIED [Concomitant]
     Dosage: 5 MG, THERAPY START AND END DATE: ASKU
  2. ACENOCOUMAROL TABLET 1MG / BRAND NAME NOT SPECIFIED [Concomitant]
     Active Substance: ACENOCOUMAROL
     Dosage: 1 MG, THERAPY START AND END DATE: ASKU
  3. DIGOXINE TABLET 0,0625MG / LANOXIN PG TABLET 0,0625MG [Concomitant]
     Dosage: 0.0625 MG, THERAPY START AND END DATE: ASKU
  4. APIXABAN TABLET 5MG / ELIQUIS TABLET FILMOMHULD 5MG [Concomitant]
     Dosage: 5 MG, THERAPY START AND END DATE: ASKU
  5. VERAPAMIL [Suspect]
     Active Substance: VERAPAMIL HYDROCHLORIDE
     Indication: ARRHYTHMIA
     Dosage: 60 MILLIGRAM DAILY; THERAPY END DATE: ASKU
     Route: 065
     Dates: start: 2020

REACTIONS (1)
  - Overdose [Fatal]

NARRATIVE: CASE EVENT DATE: 20190124
